FAERS Safety Report 7988467-3 (Version None)
Quarter: 2011Q4

REPORT INFORMATION
  Report Type: 
  Country: None (occurrence: None)
  Receive Date: 20111216
  Receipt Date: 20111118
  Transmission Date: 20120403
  Serious: Yes (Hospitalization)
  Sender: FDA-Public Use
  Company Number: FR-PFIZER INC-K201101228

PATIENT
  Age: 23 Year
  Sex: Female

DRUGS (5)
  1. ENOXAPARIN SODIUM [Concomitant]
     Dosage: 140 MG, 1X/DAY
     Dates: start: 20110114
  2. PREDNISOLONE [Concomitant]
     Indication: SYSTEMIC LUPUS ERYTHEMATOSUS
     Dosage: 7.5 MG, 1X/DAY
  3. CYCLOSPORINE [Suspect]
     Indication: GLOMERULONEPHRITIS MEMBRANOUS
     Dosage: 150 MG, 2X/DAY
     Route: 048
  4. ALTACE [Suspect]
     Indication: GLOMERULONEPHRITIS MEMBRANOUS
     Dosage: 5 MG, 1X/DAY
     Route: 048
     Dates: end: 20110126
  5. TORSEMIDE [Suspect]
     Indication: GLOMERULONEPHRITIS MEMBRANOUS
     Dosage: 10 MG, 1X/DAY
     Route: 048
     Dates: end: 20110126

REACTIONS (3)
  - MATERNAL EXPOSURE DURING PREGNANCY [None]
  - PULMONARY EMBOLISM [None]
  - DEEP VEIN THROMBOSIS [None]
